FAERS Safety Report 13385283 (Version 2)
Quarter: 2018Q2

REPORT INFORMATION
  Report Type: Spontaneous
  Country: AR (occurrence: AR)
  Receive Date: 20170329
  Receipt Date: 20180511
  Transmission Date: 20180711
  Serious: Yes (Other)
  Sender: FDA-Public Use
  Company Number: AR-AMGEN-ARGSP2017047446

PATIENT
  Age: 64 Year
  Sex: Female

DRUGS (2)
  1. ENBREL [Suspect]
     Active Substance: ETANERCEPT
     Indication: RHEUMATOID ARTHRITIS
     Dosage: 50 MG, QWK
     Route: 065
     Dates: start: 20140101
  2. ENBREL [Suspect]
     Active Substance: ETANERCEPT
     Dosage: 50 MG, UNK (EVERY 10 DAYS)
     Route: 065

REACTIONS (11)
  - Thyroid disorder [Unknown]
  - Irritable bowel syndrome [Unknown]
  - Varices oesophageal [Unknown]
  - Decreased immune responsiveness [Unknown]
  - Abdominal pain upper [Unknown]
  - Colitis [Unknown]
  - Inner ear disorder [Recovering/Resolving]
  - Abdominal pain [Unknown]
  - Anaemia [Unknown]
  - Biliary cirrhosis [Unknown]
  - Splenitis [Unknown]

NARRATIVE: CASE EVENT DATE: 201610
